FAERS Safety Report 7208284-1 (Version None)
Quarter: 2010Q4

REPORT INFORMATION
  Report Type: 
  Country: None (occurrence: None)
  Receive Date: 20101230
  Receipt Date: 20101230
  Transmission Date: 20110411
  Serious: Yes (Other)
  Sender: FDA-Public Use
  Company Number: None

PATIENT
  Age: 62 Year
  Sex: Male

DRUGS (3)
  1. ENBREL [Suspect]
     Indication: PSORIASIS
     Dosage: ENBREL 50 MG SQ
     Route: 058
     Dates: start: 20070101, end: 20100101
  2. ENBREL [Suspect]
     Indication: PSORIATIC ARTHROPATHY
     Dosage: ENBREL 50 MG SQ
     Route: 058
     Dates: start: 20070101, end: 20100101
  3. HUMIRA [Concomitant]

REACTIONS (1)
  - PROSTATE CANCER [None]
